FAERS Safety Report 25154499 (Version 1)
Quarter: 2025Q2

REPORT INFORMATION
  Report Type: Other
  Country: ES (occurrence: ES)
  Receive Date: 20250403
  Receipt Date: 20250403
  Transmission Date: 20250717
  Serious: Yes (Other)
  Sender: Integrated Therapeutic Solutions
  Company Number: ES-Integrated Therapeutic Solutions Inc.-2174188

PATIENT
  Age: 56 Year
  Sex: Female

DRUGS (2)
  1. PYLERA [Suspect]
     Active Substance: BISMUTH SUBCITRATE POTASSIUM\METRONIDAZOLE\TETRACYCLINE HYDROCHLORIDE
     Indication: Helicobacter infection
  2. OMEPRAZOLE [Suspect]
     Active Substance: OMEPRAZOLE

REACTIONS (1)
  - Angioedema [Unknown]
